FAERS Safety Report 16922698 (Version 1)
Quarter: 2019Q4

REPORT INFORMATION
  Report Type: Spontaneous
  Country: CA (occurrence: CA)
  Receive Date: 20191016
  Receipt Date: 20191016
  Transmission Date: 20200122
  Serious: Yes (Other)
  Sender: FDA-Public Use
  Company Number: CA-AUROBINDO-AUR-APL-2019-066825

PATIENT
  Age: 49 Year
  Sex: Female

DRUGS (1)
  1. TENOFOVIR [Suspect]
     Active Substance: TENOFOVIR
     Indication: HEPATITIS B
     Dosage: 300.0 MILLIGRAM, ONCE A DAY
     Route: 048

REACTIONS (8)
  - Dizziness [Unknown]
  - Fatigue [Unknown]
  - Chest discomfort [Unknown]
  - Heart rate increased [Unknown]
  - Lactic acidosis [Unknown]
  - Nausea [Unknown]
  - Myalgia [Unknown]
  - Dyspnoea [Unknown]
